FAERS Safety Report 9103722 (Version 1)
Quarter: 2013Q1

REPORT INFORMATION
  Report Type: Spontaneous
  Country: FR (occurrence: FR)
  Receive Date: 20130219
  Receipt Date: 20130219
  Transmission Date: 20140127
  Serious: Yes (Life-Threatening, Disabling)
  Sender: FDA-Public Use
  Company Number: FR-SANOFI-AVENTIS-2013SA013173

PATIENT
  Age: 73 Year
  Sex: Female

DRUGS (2)
  1. TAXOTERE [Suspect]
     Indication: INVASIVE DUCTAL BREAST CARCINOMA
     Route: 042
     Dates: start: 20110427, end: 20110427
  2. TAXOTERE [Suspect]
     Indication: INVASIVE DUCTAL BREAST CARCINOMA
     Route: 042
     Dates: start: 20110518, end: 20110518

REACTIONS (6)
  - Eye burns [Recovered/Resolved with Sequelae]
  - Mucosal inflammation [Unknown]
  - Skin toxicity [Recovered/Resolved with Sequelae]
  - Rash erythematous [Recovered/Resolved with Sequelae]
  - Skin exfoliation [Recovered/Resolved with Sequelae]
  - Onychomadesis [Unknown]
